FAERS Safety Report 12699353 (Version 2)
Quarter: 2016Q3

REPORT INFORMATION
  Report Type: Spontaneous
  Country: FR (occurrence: FR)
  Receive Date: 20160830
  Receipt Date: 20160831
  Transmission Date: 20161109
  Serious: Yes (Hospitalization)
  Sender: FDA-Public Use
  Company Number: FR-PFIZER INC-2016401215

PATIENT
  Age: 72 Year
  Sex: Female

DRUGS (12)
  1. FLECAINE [Concomitant]
     Active Substance: FLECAINIDE
  2. TAHOR [Concomitant]
     Active Substance: ATORVASTATIN CALCIUM
  3. ZESTORETIC [Concomitant]
     Active Substance: HYDROCHLOROTHIAZIDE\LISINOPRIL
  4. KARDEGIC [Concomitant]
     Active Substance: ASPIRIN LYSINE
  5. LYRICA [Suspect]
     Active Substance: PREGABALIN
     Dosage: 3 DF OF 100 MG, DAILY
     Route: 048
     Dates: start: 20160805
  6. FURADANTINE [Suspect]
     Active Substance: NITROFURANTOIN
     Indication: URINARY TRACT INFECTION
     Dosage: 50 MG, UNK
     Route: 048
     Dates: start: 20160804, end: 20160811
  7. METFORMINE [Concomitant]
     Active Substance: METFORMIN HYDROCHLORIDE
  8. LYRICA [Suspect]
     Active Substance: PREGABALIN
     Indication: NEURALGIA
     Dosage: 2 DF OF 100 MG, DAILY
     Route: 048
     Dates: start: 20160726, end: 20160804
  9. HUMAN IMMUNOGLOBULIN [Concomitant]
     Active Substance: HUMAN IMMUNOGLOBULIN G
     Indication: GUILLAIN-BARRE SYNDROME
     Dosage: UNK
     Dates: start: 20160729, end: 20160802
  10. DIAMICRON [Concomitant]
     Active Substance: GLICLAZIDE
  11. IMOVANE [Concomitant]
     Active Substance: ZOPICLONE
  12. TRAMADOL. [Concomitant]
     Active Substance: TRAMADOL

REACTIONS (2)
  - Neutropenia [Not Recovered/Not Resolved]
  - Condition aggravated [Not Recovered/Not Resolved]

NARRATIVE: CASE EVENT DATE: 20160731
